FAERS Safety Report 7342614 (Version 4)
Quarter: 2013Q2

REPORT INFORMATION
  Report Type: Report from Study
  Country: US (occurrence: US)
  Receive Date: 20100402
  Receipt Date: 20130425
  Transmission Date: 20140414
  Serious: Yes (Hospitalization)
  Sender: FDA-Public Use
  Company Number: US-BAXTER-2010BH007955

PATIENT
  Age: 71 Year
  Sex: Male
  Weight: 76.2 kg

DRUGS (5)
  1. NAMENDA [Concomitant]
     Indication: DEMENTIA ALZHEIMER^S TYPE
     Route: 048
     Dates: start: 200812
  2. ARICEPT [Concomitant]
     Indication: DEMENTIA ALZHEIMER^S TYPE
     Route: 048
     Dates: start: 20090818
  3. LEXAPRO [Concomitant]
     Indication: DEPRESSION
     Route: 048
     Dates: start: 20081211
  4. GAMMAGARD LIQUID [Suspect]
     Indication: DEMENTIA ALZHEIMER^S TYPE
     Dosage: 400 MG/KG BODY WEIGHT
     Route: 042
     Dates: start: 20100312
  5. GAMMAGARD LIQUID [Suspect]
     Dosage: 400 MG/KG BODY WEIGHT
     Route: 042
     Dates: start: 20100226

REACTIONS (2)
  - Deep vein thrombosis [Recovered/Resolved]
  - Pulmonary embolism [Recovered/Resolved]
